FAERS Safety Report 6127651-0 (Version None)
Quarter: 2009Q1

REPORT INFORMATION
  Report Type: 
  Country: None (occurrence: None)
  Receive Date: 20090323
  Receipt Date: 20090310
  Transmission Date: 20090719
  Serious: Yes (Other)
  Sender: FDA-Public Use
  Company Number: US-PFIZER INC-2006086729

PATIENT
  Sex: Female

DRUGS (4)
  1. PROVERA [Suspect]
     Indication: MENOPAUSE
     Dosage: 2.5 MG, UNK
     Route: 048
     Dates: start: 19940101, end: 19950101
  2. MEDROXYPROGESTERONE AND MEDROXYPROGESTERONE ACETATE [Suspect]
     Indication: MENOPAUSE
     Route: 048
  3. PREMPRO [Suspect]
     Indication: MENOPAUSE
     Dosage: 0.3 MG, UNK
     Route: 048
     Dates: start: 19950101, end: 19980101
  4. ESTRACE [Suspect]
     Indication: MENOPAUSE
     Dosage: 1 MG, UNK
     Route: 048
     Dates: start: 19930101, end: 19950101

REACTIONS (1)
  - BREAST CANCER FEMALE [None]
